FAERS Safety Report 17923823 (Version 1)
Quarter: 2020Q2

REPORT INFORMATION
  Report Type: Spontaneous
  Country: US (occurrence: US)
  Receive Date: 20200622
  Receipt Date: 20200622
  Transmission Date: 20200714
  Serious: Yes (Death)
  Sender: FDA-Public Use
  Company Number: None

PATIENT
  Age: 52 Year
  Sex: Female
  Weight: 80.3 kg

DRUGS (10)
  1. AZITHROMYCIN ANHYDROUS. [Concomitant]
     Active Substance: AZITHROMYCIN ANHYDROUS
     Dates: start: 20200603, end: 20200603
  2. PANTOPRAZOLE [Concomitant]
     Active Substance: PANTOPRAZOLE
     Dates: start: 20200603, end: 20200604
  3. PROPOFOL. [Concomitant]
     Active Substance: PROPOFOL
     Dates: start: 20200603, end: 20200605
  4. BUPROPRION [Concomitant]
     Active Substance: BUPROPION
     Dates: start: 20200604, end: 20200605
  5. CEFTRIAXONE. [Concomitant]
     Active Substance: CEFTRIAXONE
     Dates: start: 20200603, end: 20200605
  6. FENTANYL. [Concomitant]
     Active Substance: FENTANYL
     Dates: start: 20200603, end: 20200605
  7. HYDROCORTISONE. [Concomitant]
     Active Substance: HYDROCORTISONE
     Dates: start: 20200605, end: 20200605
  8. NOREPINEPHRINE. [Concomitant]
     Active Substance: NOREPINEPHRINE
     Dates: start: 20200603, end: 20200605
  9. REMDESIVIR. [Suspect]
     Active Substance: REMDESIVIR
     Indication: COVID-19
     Route: 040
     Dates: start: 20200601, end: 20200604
  10. BUSPIRONE [Concomitant]
     Active Substance: BUSPIRONE HYDROCHLORIDE
     Dates: start: 20200603, end: 20200605

REACTIONS (2)
  - Disease progression [None]
  - Death [None]

NARRATIVE: CASE EVENT DATE: 20200605
